FAERS Safety Report 5485841-4 (Version None)
Quarter: 2007Q4

REPORT INFORMATION
  Report Type: 
  Country: None (occurrence: None)
  Receive Date: 20071015
  Receipt Date: 20070618
  Transmission Date: 20080405
  Serious: Yes (Death, Life-Threatening)
  Sender: FDA-Public Use
  Company Number: JP-SANOFI-SYNTHELABO-A01200706783

PATIENT
  Age: 62 Year
  Sex: Male
  Weight: 59 kg

DRUGS (12)
  1. VANCOMYCIN [Concomitant]
     Indication: PYREXIA
     Route: 042
     Dates: start: 20051014, end: 20051027
  2. CEFOTIAM HYDROCHLORIDE [Concomitant]
     Indication: PYREXIA
     Route: 042
     Dates: start: 20051010, end: 20051013
  3. ALDACTONE [Concomitant]
     Indication: ASCITES
     Route: 048
     Dates: start: 20050810, end: 20051015
  4. LASIX [Concomitant]
     Indication: ASCITES
     Route: 048
     Dates: start: 20050728, end: 20050823
  5. LASIX [Concomitant]
     Dosage: UNK
     Route: 042
     Dates: start: 20051002, end: 20051002
  6. ALBUMIN (HUMAN) [Concomitant]
     Indication: HYPOALBUMINAEMIA
     Dosage: 50-100 ML/DAY (5 DOSING DAYS)
     Route: 042
     Dates: start: 20050729, end: 20051002
  7. LEUCOVORIN CALCIUM [Concomitant]
     Indication: RECTAL CANCER METASTATIC
     Dosage: 175 MG/DAY D1-2 WITH REST PERIOD IN BETWEEN
     Route: 042
     Dates: start: 20050412, end: 20050907
  8. SOLU-MEDROL [Concomitant]
     Indication: RASH
     Route: 042
     Dates: start: 20050907, end: 20050907
  9. FLUOROURACIL [Suspect]
     Indication: RECTAL CANCER
     Dosage: 650 MG/BODY=411.4 MG/M2 BOLUS THEN 1000 MG/BODY=632.9 MG/M2 D1-2
     Route: 042
     Dates: start: 20050824, end: 20050825
  10. S000001 [Suspect]
     Indication: RECTAL CANCER
     Route: 048
     Dates: start: 20050921, end: 20051005
  11. S000001 [Suspect]
     Indication: METASTASES TO LIVER
     Route: 048
     Dates: start: 20050921, end: 20051005
  12. OXALIPLATIN [Suspect]
     Indication: RECTAL CANCER
     Dosage: 140 MG/BODY
     Route: 042
     Dates: start: 20050907, end: 20050907

REACTIONS (2)
  - HAEMOGLOBIN DECREASED [None]
  - SYSTEMIC CANDIDA [None]
